FAERS Safety Report 8306942-9 (Version None)
Quarter: 2012Q2

REPORT INFORMATION
  Report Type: 
  Country: None (occurrence: None)
  Receive Date: 20120419
  Receipt Date: 20120417
  Transmission Date: 20120825
  Serious: Yes (Hospitalization, Other)
  Sender: FDA-Public Use
  Company Number: ADR-2011-11229

PATIENT
  Sex: Male

DRUGS (1)
  1. LIORESAL [Suspect]
     Indication: MUSCLE SPASTICITY
     Dosage: 1400 MCG, DAILY, INTRAT
     Route: 037

REACTIONS (7)
  - PRURITUS [None]
  - MUSCLE TIGHTNESS [None]
  - DEVICE MALFUNCTION [None]
  - FEELING ABNORMAL [None]
  - SKIN GRAFT [None]
  - DRUG WITHDRAWAL SYNDROME [None]
  - FORMICATION [None]
